FAERS Safety Report 5636331-7 (Version None)
Quarter: 2008Q1

REPORT INFORMATION
  Report Type: 
  Country: None (occurrence: None)
  Receive Date: 20080225
  Receipt Date: 20080211
  Transmission Date: 20080703
  Serious: Yes (Death)
  Sender: FDA-Public Use
  Company Number: DE-AMGEN-UK265518

PATIENT
  Age: 37 Year
  Sex: Male

DRUGS (2)
  1. MIMPARA [Suspect]
     Indication: DRUG USE FOR UNKNOWN INDICATION
     Route: 065
  2. UNSPECIFIED ANTIHYPERTENSIVE AGENT [Concomitant]
     Route: 065

REACTIONS (1)
  - CEREBRAL HAEMORRHAGE [None]
